FAERS Safety Report 7631828-2 (Version None)
Quarter: 2011Q3

REPORT INFORMATION
  Report Type: 
  Country: None (occurrence: None)
  Receive Date: 20110725
  Receipt Date: 20110411
  Transmission Date: 20111222
  Serious: No
  Sender: FDA-Public Use
  Company Number: US-BRISTOL-MYERS SQUIBB COMPANY-15664824

PATIENT
  Age: 61 Year
  Sex: Female

DRUGS (5)
  1. ATARAX [Concomitant]
  2. AMLODIPINE [Concomitant]
  3. PRAVASTATIN SODIUM [Concomitant]
  4. WARFARIN SODIUM [Suspect]
     Indication: PULMONARY EMBOLISM
     Dates: start: 20110401
  5. AMBIEN [Concomitant]

REACTIONS (1)
  - SKIN DISCOLOURATION [None]
